FAERS Safety Report 17368682 (Version 1)
Quarter: 2020Q1

REPORT INFORMATION
  Report Type: Spontaneous
  Country: US (occurrence: US)
  Receive Date: 20200120
  Receipt Date: 20200120
  Transmission Date: 20200409
  Serious: Yes (Death)
  Sender: FDA-Public Use
  Company Number: None

PATIENT
  Sex: Female

DRUGS (14)
  1. EZETIMBE [Concomitant]
     Active Substance: EZETIMIBE
  2. PANTOPRAZOLE [Concomitant]
     Active Substance: PANTOPRAZOLE
  3. SPIRONOLACT [Concomitant]
     Active Substance: SPIRONOLACTONE
  4. TRAZODONE [Concomitant]
     Active Substance: TRAZODONE HYDROCHLORIDE
  5. LEVOTHYROXIN [Concomitant]
     Active Substance: LEVOTHYROXINE
  6. AMIODARONE [Concomitant]
     Active Substance: AMIODARONE
  7. GLIMEPIRIDE. [Concomitant]
     Active Substance: GLIMEPIRIDE
  8. PREGABALIN. [Concomitant]
     Active Substance: PREGABALIN
  9. SUTENT [Suspect]
     Active Substance: SUNITINIB MALATE
     Indication: PRODUCT USED FOR UNKNOWN INDICATION
  10. DULOXETINE. [Concomitant]
     Active Substance: DULOXETINE
  11. FOLIC ACID. [Concomitant]
     Active Substance: FOLIC ACID
  12. MYRBETRIQ [Concomitant]
     Active Substance: MIRABEGRON
  13. HYDRALAZINE [Concomitant]
     Active Substance: HYDRALAZINE HYDROCHLORIDE
  14. ISOSORB MONO [Concomitant]
     Active Substance: ISOSORBIDE MONONITRATE

REACTIONS (1)
  - Death [None]
